FAERS Safety Report 7423076-6 (Version None)
Quarter: 2011Q2

REPORT INFORMATION
  Report Type: 
  Country: None (occurrence: None)
  Receive Date: 20110419
  Receipt Date: 20110412
  Transmission Date: 20111010
  Serious: Yes (Death, Other)
  Sender: FDA-Public Use
  Company Number: PT-ELI_LILLY_AND_COMPANY-PT201103001843

PATIENT
  Sex: Female
  Weight: 50 kg

DRUGS (17)
  1. ENOXAPARIN [Concomitant]
     Dosage: 120 MG, UNKNOWN
     Route: 065
     Dates: start: 20110117
  2. TENOXICAM [Concomitant]
     Dosage: 20 MG, UNKNOWN
     Route: 065
     Dates: start: 20110118
  3. GABAPENTIN [Concomitant]
     Dosage: 1200 MG, UNKNOWN
     Route: 065
     Dates: start: 20110117
  4. AMINOCAPROIC ACID [Concomitant]
     Dosage: UNK, UNKNOWN
     Route: 065
     Dates: start: 20110117
  5. AMIODARONE [Concomitant]
     Dosage: 20 MG, UNK
     Dates: start: 20110117
  6. CISPLATIN [Concomitant]
     Indication: LUNG ADENOCARCINOMA STAGE IV
     Dosage: UNK, UNKNOWN
     Route: 065
  7. AMITRIPTYLINE [Concomitant]
     Dosage: 25 MG, UNKNOWN
     Route: 065
     Dates: start: 20110118
  8. LORAZEPAM [Concomitant]
     Dosage: 2.5 MG, UNKNOWN
     Route: 065
     Dates: start: 20110126
  9. ALIMTA [Suspect]
     Indication: LUNG CARCINOMA CELL TYPE UNSPECIFIED STAGE IV
     Dosage: 750 MG, DAILY (1/D)
     Route: 042
     Dates: start: 20110202, end: 20110202
  10. MORPHINE [Concomitant]
     Dosage: UNK, UNKNOWN
     Route: 065
     Dates: start: 20110118
  11. ESOMEPRAZOL /01479301/ [Concomitant]
     Dosage: 20 MG, UNKNOWN
     Route: 065
     Dates: start: 20110118
  12. IPRATROPIUM BROMIDE [Concomitant]
     Dosage: UNK, UNKNOWN
     Route: 065
     Dates: start: 20110127
  13. LOPERAMIDE [Concomitant]
     Dosage: UNK, 2/D
     Route: 065
     Dates: start: 20110131, end: 20110201
  14. DEXAMETHASONE [Concomitant]
     Dosage: 8 MG, UNKNOWN
     Route: 065
     Dates: start: 20110131
  15. FOLIC ACID [Concomitant]
     Dosage: 5 MG, UNKNOWN
     Route: 065
     Dates: start: 20110127
  16. PARACETAMOL [Concomitant]
     Dosage: 1 G, UNKNOWN
     Route: 065
     Dates: start: 20110126
  17. BETAMETHASONE [Concomitant]
     Dosage: 1 %, UNKNOWN
     Route: 065
     Dates: start: 20110117

REACTIONS (3)
  - SEPTIC SHOCK [None]
  - PANCYTOPENIA [None]
  - DERMATITIS [None]
